FAERS Safety Report 9827459 (Version 1)
Quarter: 2014Q1

REPORT INFORMATION
  Report Type: Spontaneous
  Country: US (occurrence: None)
  Receive Date: 20140116
  Receipt Date: 20140116
  Transmission Date: 20141002
  Serious: Yes (Other)
  Sender: FDA-Public Use
  Company Number: None

PATIENT
  Age: 30 Year
  Sex: Female
  Weight: 52.16 kg

DRUGS (1)
  1. MINASTRIN24 FE WARNER CHILCOTT [Suspect]
     Indication: CONTRACEPTION
     Route: 048
     Dates: start: 20130911, end: 20140105

REACTIONS (14)
  - Acne cystic [None]
  - Weight increased [None]
  - Depression [None]
  - Feeling abnormal [None]
  - Sensation of heaviness [None]
  - Irritability [None]
  - Mood swings [None]
  - Panic attack [None]
  - Fatigue [None]
  - Amnesia [None]
  - Disturbance in attention [None]
  - Abdominal distension [None]
  - Anxiety [None]
  - Product substitution issue [None]
